FAERS Safety Report 5114048-5 (Version None)
Quarter: 2006Q3

REPORT INFORMATION
  Report Type: 
  Country: None (occurrence: None)
  Receive Date: 20060925
  Receipt Date: 20060914
  Transmission Date: 20061208
  Serious: Yes (Hospitalization)
  Sender: FDA-Public Use
  Company Number: US-MERCK-0609USA03467

PATIENT
  Age: 80 Year
  Sex: Female

DRUGS (2)
  1. INVANZ [Suspect]
     Indication: INFECTION
     Route: 042
  2. INVANZ [Suspect]
     Indication: WHITE BLOOD CELL COUNT INCREASED
     Route: 042

REACTIONS (1)
  - WHITE BLOOD CELL COUNT INCREASED [None]
